FAERS Safety Report 22255265 (Version 4)
Quarter: 2023Q4

REPORT INFORMATION
  Report Type: Spontaneous
  Country: JP (occurrence: JP)
  Receive Date: 20230426
  Receipt Date: 20231115
  Transmission Date: 20240110
  Serious: Yes (Death, Other)
  Sender: FDA-Public Use
  Company Number: JP-AMGEN-JPNSP2023054007

PATIENT
  Sex: Female

DRUGS (4)
  1. BLINCYTO [Suspect]
     Active Substance: BLINATUMOMAB
     Indication: B precursor type acute leukaemia
     Dosage: 9 MICROGRAM, QD (INTRAVENOUS DRIP INFUSION)
     Route: 042
     Dates: start: 20230315, end: 20230321
  2. BLINCYTO [Suspect]
     Active Substance: BLINATUMOMAB
     Dosage: 28 MICROGRAM, QD (INTRAVENOUS DRIP INFUSION)
     Route: 042
     Dates: start: 20230322, end: 202306
  3. BLINCYTO [Suspect]
     Active Substance: BLINATUMOMAB
     Dosage: 28 MICROGRAM, QD (INTRAVENOUS DRIP INFUSION)
     Route: 042
     Dates: start: 20230907, end: 20230918
  4. ICLUSIG [Suspect]
     Active Substance: PONATINIB
     Indication: Product used for unknown indication
     Dosage: 15 MILLIGRAM
     Route: 065

REACTIONS (6)
  - Cardiac arrest [Fatal]
  - COVID-19 pneumonia [Fatal]
  - Blast cell count increased [Unknown]
  - Flushing [Recovered/Resolved]
  - Rash [Recovering/Resolving]
  - Hot flush [Recovered/Resolved]

NARRATIVE: CASE EVENT DATE: 20230101
